FAERS Safety Report 6986760-4 (Version None)
Quarter: 2010Q3

REPORT INFORMATION
  Report Type: 
  Country: None (occurrence: None)
  Receive Date: 20100915
  Receipt Date: 20090803
  Transmission Date: 20110219
  Serious: No
  Sender: FDA-Public Use
  Company Number: US-WYE-H10438109

PATIENT
  Age: 63 Year
  Sex: Female

DRUGS (2)
  1. PRISTIQ [Suspect]
     Indication: DEPRESSION
     Route: 048
     Dates: start: 20090731
  2. LUNESTA [Concomitant]

REACTIONS (2)
  - ABNORMAL DREAMS [None]
  - SOMNOLENCE [None]
